FAERS Safety Report 17545675 (Version 3)
Quarter: 2020Q3

REPORT INFORMATION
  Report Type: Spontaneous
  Country: JP (occurrence: JP)
  Receive Date: 20200316
  Receipt Date: 20200916
  Transmission Date: 20201102
  Serious: Yes (Other)
  Sender: FDA-Public Use
  Company Number: JP-PFIZER INC-2020106553

PATIENT
  Age: 76 Year
  Sex: Male

DRUGS (3)
  1. NORADRENALINE (NORPINEPHRINE) [Concomitant]
     Active Substance: NOREPINEPHRINE
     Route: 045
  2. VASOPRESSIN. [Suspect]
     Active Substance: VASOPRESSIN
     Route: 041
  3. HYDROCORTISONE. [Suspect]
     Active Substance: HYDROCORTISONE
     Indication: SEPTIC SHOCK
     Dosage: 200 MG, DAILY

REACTIONS (1)
  - Diabetes insipidus [Recovering/Resolving]
